FAERS Safety Report 7362319-4 (Version None)
Quarter: 2011Q1

REPORT INFORMATION
  Report Type: 
  Country: None (occurrence: None)
  Receive Date: 20110318
  Receipt Date: 20110311
  Transmission Date: 20110831
  Serious: Yes (Hospitalization)
  Sender: FDA-Public Use
  Company Number: DE-GENZYME-CAMP-1000253

PATIENT
  Sex: Female
  Weight: 90 kg

DRUGS (3)
  1. VALETTE [Concomitant]
     Indication: CONTRACEPTION
     Dosage: UNK
     Route: 048
  2. CAMPATH [Suspect]
     Indication: MULTIPLE SCLEROSIS
     Dosage: 12 MG, QDX5
     Route: 042
     Dates: start: 20090414, end: 20090418
  3. IBUPROFEN [Concomitant]
     Indication: MIGRAINE
     Dosage: 400 MG, PRN
     Route: 048
     Dates: start: 20090401

REACTIONS (1)
  - MIGRAINE [None]
